FAERS Safety Report 9392649 (Version 1)
Quarter: 2013Q3

REPORT INFORMATION
  Report Type: Spontaneous
  Country: US (occurrence: US)
  Receive Date: 20130710
  Receipt Date: 20130710
  Transmission Date: 20140515
  Serious: Yes (Other)
  Sender: FDA-Public Use
  Company Number: PHEH2013US014226

PATIENT
  Age: 72 Year
  Sex: Female

DRUGS (12)
  1. TASIGNA [Suspect]
  2. SANDOSTATIN [Suspect]
  3. STEROID NOS [Suspect]
  4. DIOVAN [Concomitant]
  5. ISOSORBIDE [Concomitant]
  6. TOPROL [Concomitant]
  7. PREDNISONE [Concomitant]
  8. METHOTREXATE [Concomitant]
  9. LASIX [Concomitant]
  10. AMTURNIDE [Concomitant]
  11. METFORMIN ER [Concomitant]
  12. ALLOPURINOL [Concomitant]

REACTIONS (2)
  - Blindness [Unknown]
  - Diabetes mellitus [Unknown]
